FAERS Safety Report 8531180-4 (Version None)
Quarter: 2012Q3

REPORT INFORMATION
  Report Type: 
  Country: None (occurrence: None)
  Receive Date: 20120723
  Receipt Date: 20120709
  Transmission Date: 20120928
  Serious: Yes (Hospitalization)
  Sender: FDA-Public Use
  Company Number: US-ELI_LILLY_AND_COMPANY-US201207002932

PATIENT
  Sex: Female

DRUGS (2)
  1. LANTUS [Concomitant]
     Dosage: UNK, UNKNOWN
     Route: 058
  2. HUMALOG [Suspect]
     Dosage: UNK, UNKNOWN

REACTIONS (1)
  - LOSS OF CONSCIOUSNESS [None]
